FAERS Safety Report 5657914-4 (Version None)
Quarter: 2008Q1

REPORT INFORMATION
  Report Type: 
  Country: None (occurrence: None)
  Receive Date: 20080310
  Receipt Date: 20080228
  Transmission Date: 20080703
  Serious: Yes (Other)
  Sender: FDA-Public Use
  Company Number: PHBS2008ES02283

PATIENT
  Age: 72 Year
  Sex: Female

DRUGS (1)
  1. LESCOL [Suspect]
     Indication: DYSLIPIDAEMIA
     Dosage: 20 MG/D
     Route: 065

REACTIONS (2)
  - DYSTONIA [None]
  - TRANSIENT ISCHAEMIC ATTACK [None]
